FAERS Safety Report 20868954 (Version 4)
Quarter: 2022Q2

REPORT INFORMATION
  Report Type: Spontaneous
  Country: JP (occurrence: JP)
  Receive Date: 20220524
  Receipt Date: 20220624
  Transmission Date: 20220721
  Serious: Yes (Hospitalization, Other)
  Sender: FDA-Public Use
  Company Number: JP-AMGEN-JPNSP2022087430

PATIENT
  Age: 64 Year
  Sex: Male

DRUGS (5)
  1. OTEZLA [Suspect]
     Active Substance: APREMILAST
     Indication: Psoriasis
     Dosage: 60 MILLIGRAM, BID
     Route: 048
     Dates: start: 20180223
  2. OTEZLA [Suspect]
     Active Substance: APREMILAST
     Dosage: UNK UNK, BID
     Route: 048
     Dates: start: 2022, end: 2022
  3. OTEZLA [Suspect]
     Active Substance: APREMILAST
     Dosage: UNK, BID
     Route: 048
     Dates: start: 2022
  4. BETAMETHASONE DIPROPIONATE [Concomitant]
     Active Substance: BETAMETHASONE DIPROPIONATE
     Indication: Psoriasis
     Dosage: UNK UNK, QD (OINTMENT AND  LOTION)
  5. BETAMETHASONE\CALCIPOTRIENE [Concomitant]
     Active Substance: BETAMETHASONE\CALCIPOTRIENE
     Indication: Psoriasis
     Dosage: UNK UNK, QD (OINTMENT AND FOAM)

REACTIONS (8)
  - Meningitis herpes [Recovered/Resolved]
  - Rhabdomyolysis [Recovered/Resolved]
  - Syncope [Unknown]
  - Renal failure [Recovered/Resolved]
  - Off label use [Unknown]
  - Amnesia [Unknown]
  - Dizziness [Unknown]
  - Diarrhoea [Unknown]

NARRATIVE: CASE EVENT DATE: 20200101
